FAERS Safety Report 7903852-3 (Version None)
Quarter: 2011Q4

REPORT INFORMATION
  Report Type: 
  Country: None (occurrence: None)
  Receive Date: 20111109
  Receipt Date: 20111101
  Transmission Date: 20120403
  Serious: Yes (Other)
  Sender: FDA-Public Use
  Company Number: US-ASTRAZENECA-2011SE62433

PATIENT
  Age: 63 Year
  Sex: Female
  Weight: 52.2 kg

DRUGS (8)
  1. SEROQUEL [Suspect]
     Indication: DEPRESSION
     Route: 048
     Dates: start: 20060101
  2. SEROQUEL [Suspect]
     Indication: BIPOLAR DISORDER
     Route: 048
     Dates: start: 20060101
  3. KEPRA XR [Concomitant]
     Indication: CONVULSION
     Route: 048
     Dates: start: 20110801
  4. SIMBASTATIN [Concomitant]
     Indication: BLOOD CHOLESTEROL ABNORMAL
     Route: 048
     Dates: start: 20060101
  5. MULTIPLE VITAMINS [Concomitant]
  6. CALCIUM [Concomitant]
  7. VITAMIN B-12 [Concomitant]
  8. LORAZEPAM [Concomitant]
     Indication: SLEEP DISORDER
     Route: 048
     Dates: start: 20060101

REACTIONS (3)
  - CONVULSION [None]
  - CENTRAL NERVOUS SYSTEM LESION [None]
  - NEOPLASM MALIGNANT [None]
